FAERS Safety Report 23396515 (Version 1)
Quarter: 2024Q1

REPORT INFORMATION
  Report Type: Spontaneous
  Country: IN (occurrence: IN)
  Receive Date: 20240112
  Receipt Date: 20240112
  Transmission Date: 20240410
  Serious: Yes (Other)
  Sender: FDA-Public Use
  Company Number: IN-002147023-NVSC2024IN004661

PATIENT
  Age: 50 Year
  Sex: Male

DRUGS (6)
  1. CYCLOSPORINE [Suspect]
     Active Substance: CYCLOSPORINE
     Indication: Haemophagocytic lymphohistiocytosis
     Dosage: UNK
     Route: 065
  2. DEXAMETHASONE [Suspect]
     Active Substance: DEXAMETHASONE
     Indication: Haemophagocytic lymphohistiocytosis
     Dosage: UNK
     Route: 065
  3. CARMUSTINE [Concomitant]
     Active Substance: CARMUSTINE
     Indication: Surgical preconditioning
     Dosage: 300 MG/M2, RECEIVED ON DAY 6
     Route: 065
  4. CYTARABINE [Concomitant]
     Active Substance: CYTARABINE
     Indication: Surgical preconditioning
     Dosage: 200 MG/M2, RECEIVED ON DAY 5
     Route: 065
  5. ETOPOSIDE [Concomitant]
     Active Substance: ETOPOSIDE
     Indication: Surgical preconditioning
     Dosage: 200 MG/M2, RECEIVED ON DAY 5
     Route: 065
  6. MELPHALAN [Concomitant]
     Active Substance: MELPHALAN
     Indication: Surgical preconditioning
     Dosage: 120 MG/M2, RECEIVED ON DAY-1
     Route: 065

REACTIONS (4)
  - Nephropathy toxic [Unknown]
  - Hyperkalaemia [Unknown]
  - Drug intolerance [Unknown]
  - Product use in unapproved indication [Unknown]
